FAERS Safety Report 7468943-2 (Version None)
Quarter: 2011Q2

REPORT INFORMATION
  Report Type: 
  Country: None (occurrence: None)
  Receive Date: 20110428
  Receipt Date: 20110422
  Transmission Date: 20111010
  Serious: Yes (Death, Hospitalization)
  Sender: FDA-Public Use
  Company Number: 2011SP018098

PATIENT
  Sex: Male

DRUGS (3)
  1. TEMODAR [Suspect]
     Indication: OLIGODENDROGLIOMA
     Dates: start: 20110112
  2. TEMODAR [Suspect]
     Indication: OLIGODENDROGLIOMA
     Dates: start: 20110309, end: 20110313
  3. RADIATION THERAPY [Suspect]
     Indication: OLIGODENDROGLIOMA
     Dates: start: 20110309

REACTIONS (12)
  - CONFUSIONAL STATE [None]
  - CHOLELITHIASIS [None]
  - RENAL INFARCT [None]
  - HAEMOGLOBIN DECREASED [None]
  - OLIGODENDROGLIOMA [None]
  - DISEASE PROGRESSION [None]
  - MYOCARDIAL INFARCTION [None]
  - GALLBLADDER DISORDER [None]
  - LARGE INTESTINAL HAEMORRHAGE [None]
  - AGITATION [None]
  - ASTHENIA [None]
  - GALLBLADDER OEDEMA [None]
